FAERS Safety Report 10496190 (Version 1)
Quarter: 2014Q4

REPORT INFORMATION
  Report Type: Spontaneous
  Country: FR (occurrence: FR)
  Receive Date: 20141003
  Receipt Date: 20141003
  Transmission Date: 20150528
  Serious: Yes (Other)
  Sender: FDA-Public Use
  Company Number: FR-PFIZER INC-2014268567

PATIENT
  Age: 68 Year
  Sex: Male

DRUGS (2)
  1. LYRICA [Suspect]
     Active Substance: PREGABALIN
     Indication: NEURALGIA
     Dosage: 300 MG, 4X/DAY
     Route: 048
     Dates: start: 20140811, end: 20140825
  2. CODEINE [Concomitant]
     Active Substance: CODEINE
     Indication: NEURALGIA
     Dosage: UNK
     Dates: start: 20140811

REACTIONS (5)
  - Tachycardia [Unknown]
  - Insomnia [Unknown]
  - Intentional overdose [Recovered/Resolved]
  - Hyperhidrosis [Unknown]
  - Pain [Unknown]

NARRATIVE: CASE EVENT DATE: 20140811
